FAERS Safety Report 20867661 (Version 1)
Quarter: 2022Q2

REPORT INFORMATION
  Report Type: Spontaneous
  Country: US (occurrence: US)
  Receive Date: 20220524
  Receipt Date: 20220524
  Transmission Date: 20220721
  Serious: No
  Sender: FDA-Public Use
  Company Number: US-ORGANON-O2205USA001567

PATIENT
  Age: 77 Year
  Sex: Male

DRUGS (5)
  1. REMERON [Suspect]
     Active Substance: MIRTAZAPINE
     Indication: Poor quality sleep
     Dosage: 7.5 MILLIGRAM
  2. REMERON [Suspect]
     Active Substance: MIRTAZAPINE
     Indication: Somnolence
  3. MELATONIN [Concomitant]
     Active Substance: MELATONIN
     Indication: Sleep disorder
     Dosage: 6 MILLIGRAM
  4. OLANZAPINE [Concomitant]
     Active Substance: OLANZAPINE
     Indication: Insomnia
     Dosage: 5 MILLIGRAM
  5. OLANZAPINE [Concomitant]
     Active Substance: OLANZAPINE
     Indication: Prophylaxis

REACTIONS (1)
  - Product use in unapproved indication [Unknown]
